FAERS Safety Report 8614912 (Version 4)
Quarter: 2012Q4

REPORT INFORMATION
  Report Type: 
  Country: LV (occurrence: LV)
  Receive Date: 20120614
  Receipt Date: 20120913
  Transmission Date: 20130627
  Serious: Yes (Other)
  Sender: FDA-Public Use
  Company Number: LV-GLAXOSMITHKLINE-B0807896A

PATIENT
  Age: 34 Year
  Sex: Male
  Weight: 75 kg

DRUGS (4)
  1. TROBALT [Suspect]
     Indication: EPILEPSY
     Dosage: 150MG Three times per day
     Route: 048
     Dates: start: 20120322, end: 20120416
  2. LAMICTAL [Concomitant]
     Indication: EPILEPSY
     Dosage: 150MG per day
     Route: 048
  3. DEPAKINE CHRONO [Concomitant]
     Indication: EPILEPSY
     Dosage: 500MG per day
     Route: 048
  4. CLONAZEPAM [Concomitant]
     Indication: EPILEPSY
     Dosage: 2MG per day
     Route: 048

REACTIONS (7)
  - Loss of consciousness [Unknown]
  - Choking sensation [Not Recovered/Not Resolved]
  - Anxiety [Not Recovered/Not Resolved]
  - Tremor [Not Recovered/Not Resolved]
  - Disorientation [Unknown]
  - Somnolence [Unknown]
  - Dizziness [Unknown]
